FAERS Safety Report 21222654 (Version 1)
Quarter: 2022Q3

REPORT INFORMATION
  Report Type: Spontaneous
  Country: US (occurrence: None)
  Receive Date: 20220816
  Receipt Date: 20220816
  Transmission Date: 20221026
  Serious: Yes (unspecified)
  Sender: FDA-Public Use
  Company Number: None

PATIENT
  Age: 89 Year
  Sex: Male
  Weight: 79 kg

DRUGS (1)
  1. ALLOPURINOL [Suspect]
     Active Substance: ALLOPURINOL
     Indication: Pain
     Dosage: 300 MG EVERY DAY PO?
     Route: 048
     Dates: start: 20220108, end: 20220808

REACTIONS (1)
  - Rash [None]

NARRATIVE: CASE EVENT DATE: 20220806
